FAERS Safety Report 14543871 (Version 1)
Quarter: 2018Q1

REPORT INFORMATION
  Report Type: Spontaneous
  Country: US (occurrence: US)
  Receive Date: 20180216
  Receipt Date: 20180216
  Transmission Date: 20180509
  Serious: No
  Sender: FDA-Public Use
  Company Number: US-PFIZER INC-2018060854

PATIENT
  Age: 55 Year
  Sex: Female
  Weight: 71.2 kg

DRUGS (9)
  1. ARMOUR THYROID [Concomitant]
     Active Substance: THYROID, PORCINE
     Indication: THYROID DISORDER
     Dosage: 105 UG, DAILY, (DIVIDED INTO ONE 90MCG TABLET AND ONE 15MCG TAKEN TOGETHER DAILY)
     Dates: start: 2008
  2. VITAMIN D3 [Concomitant]
     Active Substance: CHOLECALCIFEROL
     Indication: SUPPLEMENTATION THERAPY
     Dosage: 1 DF, DAILY, (EVERY DAY)
     Route: 048
  3. DUAVEE [Suspect]
     Active Substance: BAZEDOXIFENE ACETATE\ESTROGENS, CONJUGATED
     Indication: PROPHYLAXIS
  4. ZOLOFT [Concomitant]
     Active Substance: SERTRALINE HYDROCHLORIDE
     Indication: HOT FLUSH
     Dosage: 50 MG, DAILY, (EVERY DAY)
     Route: 048
     Dates: start: 2014
  5. DUAVEE [Suspect]
     Active Substance: BAZEDOXIFENE ACETATE\ESTROGENS, CONJUGATED
     Indication: OSTEOPENIA
     Dosage: 1 DF, DAILY, (EVERY DAY)
     Route: 048
     Dates: start: 20180125, end: 20180131
  6. OMEGA 3 [Concomitant]
     Active Substance: OMEGA-3 FATTY ACIDS
     Indication: SUPPLEMENTATION THERAPY
     Dosage: 1 DF, DAILY, (EVERY DAY)
     Route: 048
  7. DUAVEE [Suspect]
     Active Substance: BAZEDOXIFENE ACETATE\ESTROGENS, CONJUGATED
     Indication: HOT FLUSH
  8. OMEGA 6 TRIGLYCERIDES [Concomitant]
     Indication: SUPPLEMENTATION THERAPY
     Dosage: 1 DF, DAILY, (EVERY DAY)
     Route: 048
  9. WELLBUTRIN [Concomitant]
     Active Substance: BUPROPION HYDROCHLORIDE
     Indication: DEPRESSION
     Dosage: 150 MG, DAILY, (EVERY DAY)
     Route: 048
     Dates: start: 2015

REACTIONS (4)
  - Energy increased [Recovered/Resolved]
  - Product use in unapproved indication [Recovered/Resolved]
  - Therapeutic response unexpected [Recovered/Resolved]
  - Somnolence [Recovered/Resolved]

NARRATIVE: CASE EVENT DATE: 20180125
